FAERS Safety Report 4846037-X (Version None)
Quarter: 2005Q4

REPORT INFORMATION
  Report Type: 
  Country: None (occurrence: None)
  Receive Date: 20051206
  Receipt Date: 20051117
  Transmission Date: 20060501
  Serious: Yes (Hospitalization)
  Sender: FDA-Public Use
  Company Number: 2005AP06046

PATIENT
  Age: 24516 Day
  Sex: Male

DRUGS (16)
  1. CRESTOR [Suspect]
     Indication: HYPERCHOLESTEROLAEMIA
     Route: 048
     Dates: start: 20051018, end: 20051107
  2. EPALRESTAT [Concomitant]
     Indication: NERVE INJURY
     Route: 048
     Dates: start: 19980601
  3. RIBALL [Concomitant]
     Indication: HYPERURICAEMIA
     Route: 048
     Dates: start: 19990203
  4. PERSANTIN [Concomitant]
     Indication: CEREBRAL INFARCTION
     Route: 048
     Dates: start: 20030511
  5. LAC B [Concomitant]
     Indication: GASTROINTESTINAL DISORDER
     Route: 048
     Dates: start: 20040105
  6. EURODIN [Concomitant]
     Indication: INSOMNIA
     Route: 048
     Dates: start: 20040105
  7. SERENZIN [Concomitant]
     Indication: INSOMNIA
     Route: 048
     Dates: start: 20040105
  8. HALCION [Concomitant]
     Indication: INSOMNIA
     Route: 048
     Dates: start: 20040105
  9. COLONEL [Concomitant]
     Indication: GASTROINTESTINAL DISORDER
     Route: 048
     Dates: start: 20040115
  10. COLONEL [Concomitant]
     Indication: CONSTIPATION
     Route: 048
     Dates: start: 20040115
  11. NOVOLIN R [Concomitant]
     Indication: DIABETES MELLITUS
     Route: 058
     Dates: start: 20041130
  12. NOVOLIN N [Concomitant]
     Indication: DIABETES MELLITUS
     Route: 058
     Dates: start: 20041130
  13. HARNAL [Concomitant]
     Indication: BENIGN PROSTATIC HYPERPLASIA
     Route: 048
     Dates: start: 20050425
  14. FERROMIA [Concomitant]
     Indication: ANAEMIA
     Route: 048
     Dates: start: 20050719
  15. PARIET [Concomitant]
     Indication: GASTRIC ULCER
     Route: 048
     Dates: start: 20050926
  16. BEZATOL SR [Concomitant]
     Dosage: PAST HISTORY

REACTIONS (7)
  - ALANINE AMINOTRANSFERASE INCREASED [None]
  - ASPARTATE AMINOTRANSFERASE INCREASED [None]
  - BACK PAIN [None]
  - BLOOD GLUCOSE INCREASED [None]
  - GAMMA-GLUTAMYLTRANSFERASE INCREASED [None]
  - LIVER DISORDER [None]
  - MALAISE [None]
